FAERS Safety Report 10357730 (Version 2)
Quarter: 2014Q4

REPORT INFORMATION
  Report Type: Spontaneous
  Country: JP (occurrence: JP)
  Receive Date: 20140801
  Receipt Date: 20141030
  Transmission Date: 20150528
  Serious: Yes (Death, Other)
  Sender: FDA-Public Use
  Company Number: PHHY2010JP095887

PATIENT
  Age: 75 Year
  Sex: Male

DRUGS (2)
  1. EXJADE [Suspect]
     Active Substance: DEFERASIROX
     Indication: APLASTIC ANAEMIA
     Dosage: 250 MG, UNK
     Route: 048
  2. EXJADE [Suspect]
     Active Substance: DEFERASIROX
     Indication: MYELODYSPLASTIC SYNDROME
     Dosage: 125 MG, DAILY
     Route: 048
     Dates: start: 20100201

REACTIONS (5)
  - Thrombocytopenia [Fatal]
  - Skin ulcer [Unknown]
  - Serum ferritin increased [Unknown]
  - Leukopenia [Not Recovered/Not Resolved]
  - Myelodysplastic syndrome [Fatal]
